FAERS Safety Report 13816034 (Version 1)
Quarter: 2017Q3

REPORT INFORMATION
  Report Type: Spontaneous
  Country: IT (occurrence: IT)
  Receive Date: 20170731
  Receipt Date: 20170731
  Transmission Date: 20171127
  Serious: Yes (Disabling, Other)
  Sender: FDA-Public Use
  Company Number: IT-TEVA-792331ACC

PATIENT
  Age: 12 Year
  Sex: Male
  Weight: 35 kg

DRUGS (19)
  1. ANTITHYMOCYTE IMMUNOGLOBULIN (RABBIT) [Suspect]
     Active Substance: LAPINE T-LYMPHOCYTE IMMUNE GLOBULIN
     Indication: BONE MARROW TRANSPLANT
     Route: 042
     Dates: start: 20160425
  2. TACHIPIRINA [Concomitant]
     Active Substance: ACETAMINOPHEN
     Dates: start: 20160425, end: 20160427
  3. URBASON [Concomitant]
     Active Substance: METHYLPREDNISOLONE
     Dates: start: 20160425, end: 20160603
  4. TRIMETON [Concomitant]
     Active Substance: CHLORPHENIRAMINE MALEATE
     Dates: start: 20160425, end: 20160428
  5. HEPARIN [Concomitant]
     Active Substance: HEPARIN SODIUM
     Dates: start: 20160421, end: 20160520
  6. BUSILVEX [Suspect]
     Active Substance: BUSULFAN
     Route: 042
     Dates: start: 20160424
  7. DEURSIL [Concomitant]
     Active Substance: URSODIOL
     Dates: start: 20160421, end: 20160421
  8. THIOTEPA. [Suspect]
     Active Substance: THIOTEPA
     Indication: BONE MARROW TRANSPLANT
     Route: 042
     Dates: start: 20160422
  9. RANITIDINE. [Concomitant]
     Active Substance: RANITIDINE
     Dates: start: 20160422, end: 20160429
  10. ALOXI [Concomitant]
     Active Substance: PALONOSETRON HYDROCHLORIDE
     Dates: start: 20160422, end: 20160425
  11. DIAMINOCILLINA [Concomitant]
     Active Substance: PENICILLIN G BENZATHINE
     Dates: start: 20160421, end: 20160421
  12. ACICLOVIR [Concomitant]
     Active Substance: ACYCLOVIR
     Dates: start: 20160421, end: 20160427
  13. CICLOSPORIN [Concomitant]
     Active Substance: CYCLOSPORINE
     Dates: start: 20160428, end: 20160520
  14. AMIKACIN SULFATE. [Concomitant]
     Active Substance: AMIKACIN SULFATE
     Dates: start: 20160427, end: 20160512
  15. VORICONAZOLE. [Concomitant]
     Active Substance: VORICONAZOLE
     Dates: start: 20160421, end: 20160512
  16. LASIX [Concomitant]
     Active Substance: FUROSEMIDE
     Dates: start: 20160421, end: 20160609
  17. TAZOCIN [Concomitant]
     Active Substance: PIPERACILLIN SODIUM\TAZOBACTAM SODIUM
     Dates: start: 20160423, end: 20160609
  18. MYCOSTATIN [Concomitant]
     Active Substance: NYSTATIN
     Dates: start: 20160421, end: 20160626
  19. FLUDARABINE [Suspect]
     Active Substance: FLUDARABINE PHOSPHATE
     Indication: BONE MARROW TRANSPLANT
     Route: 042
     Dates: start: 20160424

REACTIONS (4)
  - Anaemia [Recovering/Resolving]
  - Malaise [Recovering/Resolving]
  - Thrombocytopenia [Recovering/Resolving]
  - Presyncope [Recovering/Resolving]

NARRATIVE: CASE EVENT DATE: 20160515
